FAERS Safety Report 16186862 (Version 1)
Quarter: 2019Q2

REPORT INFORMATION
  Report Type: Spontaneous
  Country: CA (occurrence: CA)
  Receive Date: 20190411
  Receipt Date: 20190411
  Transmission Date: 20190711
  Serious: Yes (Death)
  Sender: FDA-Public Use
  Company Number: CA-CELGENEUS-CAN-20190402762

PATIENT
  Sex: Female

DRUGS (10)
  1. FASLODEX [Suspect]
     Active Substance: FULVESTRANT
     Indication: BREAST CANCER METASTATIC
     Route: 065
     Dates: start: 20190402
  2. EVEROLIMUS. [Suspect]
     Active Substance: EVEROLIMUS
     Indication: BREAST CANCER METASTATIC
     Route: 065
     Dates: start: 20160410
  3. ABRAXANE [Suspect]
     Active Substance: PACLITAXEL
     Indication: BREAST CANCER METASTATIC
     Route: 065
     Dates: start: 20181213, end: 20190218
  4. ERIBULIN [Suspect]
     Active Substance: ERIBULIN
     Indication: BREAST CANCER METASTATIC
     Route: 065
     Dates: start: 20190218, end: 20190402
  5. GEMCITABINE [Suspect]
     Active Substance: GEMCITABINE\GEMCITABINE HYDROCHLORIDE
     Indication: BREAST CANCER METASTATIC
     Route: 065
     Dates: start: 20190204
  6. XELODA [Suspect]
     Active Substance: CAPECITABINE
     Indication: BREAST CANCER METASTATIC
     Route: 065
     Dates: start: 20170619, end: 20181213
  7. IBRANCE [Suspect]
     Active Substance: PALBOCICLIB
     Indication: BREAST CANCER METASTATIC
     Dosage: 100 MILLIGRAM
     Route: 048
     Dates: start: 201404, end: 20161104
  8. IBRANCE [Suspect]
     Active Substance: PALBOCICLIB
     Dosage: 100 MILLIGRAM
     Route: 048
     Dates: start: 20190402
  9. CARBOPLATIN. [Suspect]
     Active Substance: CARBOPLATIN
     Indication: BREAST CANCER METASTATIC
     Route: 065
     Dates: start: 20190204
  10. EVEROLIMUS. [Suspect]
     Active Substance: EVEROLIMUS
     Route: 065
     Dates: start: 20161104, end: 20170619

REACTIONS (1)
  - Breast cancer metastatic [Fatal]
